FAERS Safety Report 18591753 (Version 1)
Quarter: 2020Q4

REPORT INFORMATION
  Report Type: Spontaneous
  Country: CN (occurrence: CN)
  Receive Date: 20201208
  Receipt Date: 20201208
  Transmission Date: 20210114
  Serious: Yes (Life-Threatening, Hospitalization, Other)
  Sender: FDA-Public Use
  Company Number: CN-ASTRAZENECA-2020SF62653

PATIENT
  Age: 67 Year
  Sex: Female
  Weight: 55 kg

DRUGS (8)
  1. GLOBULIN [Concomitant]
     Indication: PRODUCT USE ISSUE
  2. TAGRISSO [Suspect]
     Active Substance: OSIMERTINIB
     Indication: LUNG NEOPLASM MALIGNANT
     Route: 048
     Dates: start: 20200526, end: 20200826
  3. TAGRISSO [Suspect]
     Active Substance: OSIMERTINIB
     Indication: NEOPLASM
     Route: 048
     Dates: start: 20200526, end: 20200826
  4. MOXIFLOXACIN. [Concomitant]
     Active Substance: MOXIFLOXACIN
     Indication: PRODUCT USE ISSUE
  5. SULFAMETHOXAZOLE [Concomitant]
     Active Substance: SULFAMETHOXAZOLE
     Indication: PRODUCT USE ISSUE
  6. METHYLPREDNISOLONE. [Concomitant]
     Active Substance: METHYLPREDNISOLONE
     Indication: PRODUCT USE ISSUE
  7. ICOTINIB [Concomitant]
     Active Substance: ICOTINIB
     Indication: TARGETED CANCER THERAPY
  8. ALANINE [Concomitant]
     Active Substance: ALANINE
     Indication: PRODUCT USE ISSUE

REACTIONS (6)
  - Dyspnoea exertional [Recovering/Resolving]
  - Interstitial lung disease [Unknown]
  - Chest discomfort [Recovering/Resolving]
  - Pyrexia [Unknown]
  - Pneumonia [Recovering/Resolving]
  - Cough [Unknown]

NARRATIVE: CASE EVENT DATE: 20200626
